FAERS Safety Report 8486204-X (Version None)
Quarter: 2012Q3

REPORT INFORMATION
  Report Type: 
  Country: None (occurrence: None)
  Receive Date: 20120703
  Receipt Date: 20120622
  Transmission Date: 20120928
  Serious: Yes (Hospitalization)
  Sender: FDA-Public Use
  Company Number: IT-ELI_LILLY_AND_COMPANY-IT201205007935

PATIENT
  Sex: Female

DRUGS (7)
  1. PREDNISONE [Concomitant]
     Dosage: 75 MG, UNK
     Route: 048
  2. PANTOPRAZOLE [Concomitant]
     Dosage: 40 MG, UNK
     Route: 048
  3. POTASSIUM CHLORIDE [Concomitant]
     Dosage: 600 MG, UNK
     Route: 048
  4. ODANEX [Concomitant]
     Dosage: 8 MG, UNK
     Route: 042
  5. PACLITAXEL [Concomitant]
     Dosage: UNK, UNKNOWN
     Route: 065
  6. GEMZAR [Suspect]
     Indication: SARCOMA
     Dosage: 1200 MG, PER CYCLE
     Route: 042
     Dates: start: 20120308, end: 20120430
  7. DEXAMETHASONE SODIUM PHOSPHATE [Concomitant]
     Dosage: 12 MG, UNK
     Route: 042

REACTIONS (4)
  - FEELING HOT [None]
  - OFF LABEL USE [None]
  - RASH [None]
  - BACK PAIN [None]
